FAERS Safety Report 18871529 (Version 1)
Quarter: 2021Q1

REPORT INFORMATION
  Report Type: Spontaneous
  Country: US (occurrence: US)
  Receive Date: 20210210
  Receipt Date: 20210210
  Transmission Date: 20210420
  Serious: Yes (Hospitalization)
  Sender: FDA-Public Use
  Company Number: None

PATIENT
  Age: 75 Year
  Sex: Male
  Weight: 84.37 kg

DRUGS (13)
  1. OLMESARTAN MEDOXOMIL 40MG [Concomitant]
     Active Substance: OLMESARTAN MEDOXOMIL
     Dates: start: 20200812
  2. ASPIRIN 81MG [Concomitant]
     Active Substance: ASPIRIN
  3. CENTRUM SILVER [Concomitant]
     Active Substance: MINERALS\VITAMINS
     Dates: start: 20180606
  4. COENZYME Q10 [Concomitant]
     Active Substance: DIETARY SUPPLEMENT\UBIDECARENONE
     Dates: start: 20180606
  5. NANCY CHIN EYE HEALTH SMOKERS VISION RECOVERY [Concomitant]
     Dates: start: 20180606
  6. CYANOCOBALAMIN 500 MCG [Concomitant]
     Dates: start: 20160511
  7. ALLOPURINOL 100MG TABLET [Concomitant]
     Active Substance: ALLOPURINOL
     Dates: start: 20210106
  8. ATORVASTATIN 40MG [Concomitant]
     Active Substance: ATORVASTATIN
     Dates: start: 20200812
  9. ALBUTEROL INH (2.5MG/3ML) [Concomitant]
     Dates: start: 20200214
  10. BAMLANIVIMAB. [Suspect]
     Active Substance: BAMLANIVIMAB
     Indication: COVID-19
     Dosage: ?          OTHER FREQUENCY:1;?
     Route: 042
  11. BUDESONIDE?FORMOTEROL INH 4.5MCG [Concomitant]
     Dates: start: 20200505
  12. ALBUTEROL HFA INHALER [Concomitant]
     Active Substance: ALBUTEROL
     Dates: start: 20181108
  13. OMEGA?3 FATTY ACIDS [Concomitant]
     Active Substance: OMEGA-3 FATTY ACIDS
     Dates: start: 20190213

REACTIONS (5)
  - Hypoxia [None]
  - Dyspnoea [None]
  - Oxygen saturation decreased [None]
  - Productive cough [None]
  - Sputum discoloured [None]

NARRATIVE: CASE EVENT DATE: 20210208
